FAERS Safety Report 16012049 (Version 1)
Quarter: 2019Q1

REPORT INFORMATION
  Report Type: Spontaneous
  Country: US (occurrence: US)
  Receive Date: 20190130
  Receipt Date: 20190130
  Transmission Date: 20190418
  Serious: Yes (Life-Threatening, Hospitalization, Other)
  Sender: FDA-Public Use
  Company Number: None

PATIENT
  Age: 83 Year
  Sex: Female
  Weight: 61.23 kg

DRUGS (17)
  1. ELIQUIS [Suspect]
     Active Substance: APIXABAN
     Indication: ATRIAL FIBRILLATION
     Dosage: ?          QUANTITY:2.5 MG MILLIGRAM(S);?
     Route: 048
     Dates: start: 20180606, end: 20190101
  2. ASPIRIN. [Concomitant]
     Active Substance: ASPIRIN
  3. MELATONIN [Concomitant]
     Active Substance: MELATONIN
  4. VITAMIN B12 [Concomitant]
     Active Substance: CYANOCOBALAMIN
  5. SERTRALINE [Concomitant]
     Active Substance: SERTRALINE HYDROCHLORIDE
  6. ATORVASTATIN [Concomitant]
     Active Substance: ATORVASTATIN
  7. IRON [Concomitant]
     Active Substance: IRON
  8. GLUCOSAMINE CHON-MSM [Concomitant]
  9. ELIQUIS [Suspect]
     Active Substance: APIXABAN
     Indication: HEART RATE IRREGULAR
     Dosage: ?          QUANTITY:2.5 MG MILLIGRAM(S);?
     Route: 048
     Dates: start: 20180606, end: 20190101
  10. VITAMIN D3 [Concomitant]
     Active Substance: CHOLECALCIFEROL
  11. HYALURONIC [Concomitant]
  12. TUMERIC [Concomitant]
     Active Substance: HERBALS\TURMERIC
  13. COCHEAR EAR IMPLANT (A HEARING AID) [Concomitant]
  14. ELIQUIS [Suspect]
     Active Substance: APIXABAN
     Indication: MITRAL VALVE PROLAPSE
     Dosage: ?          QUANTITY:2.5 MG MILLIGRAM(S);?
     Route: 048
     Dates: start: 20180606, end: 20190101
  15. FUROSEMIDE. [Concomitant]
     Active Substance: FUROSEMIDE
  16. FISH OIL [Concomitant]
     Active Substance: FISH OIL
  17. VITAMIN [Concomitant]
     Active Substance: VITAMINS

REACTIONS (1)
  - Haemorrhage [None]

NARRATIVE: CASE EVENT DATE: 20190101
